FAERS Safety Report 6585547-4 (Version None)
Quarter: 2010Q1

REPORT INFORMATION
  Report Type: 
  Country: None (occurrence: None)
  Receive Date: 20100217
  Receipt Date: 20100210
  Transmission Date: 20100710
  Serious: Yes (Disabling)
  Sender: FDA-Public Use
  Company Number: FR-B.I. PHARMACEUTICALS,INC./RIDGEFIELD-2010-FF-00136FF

PATIENT
  Sex: Male

DRUGS (4)
  1. MECIR LP 0.4 [Suspect]
     Indication: PROSTATIC ADENOMA
     Route: 048
  2. PROSCAR [Suspect]
     Indication: PROSTATIC ADENOMA
     Route: 048
  3. ATACAND [Suspect]
     Indication: HYPERTENSION
     Dosage: 16 MG
     Route: 048
  4. MODAFINIL [Suspect]
     Indication: SLEEP APNOEA SYNDROME
     Dosage: 100 MG
     Route: 048

REACTIONS (1)
  - ARTHRALGIA [None]
